FAERS Safety Report 14348222 (Version 3)
Quarter: 2018Q2

REPORT INFORMATION
  Report Type: Report from Study
  Country: CA (occurrence: CA)
  Receive Date: 20180103
  Receipt Date: 20180622
  Transmission Date: 20180711
  Serious: Yes (Other)
  Sender: FDA-Public Use
  Company Number: CA-GLAXOSMITHKLINE-CA2017GSK202468

PATIENT
  Age: 45 Year
  Sex: Female

DRUGS (8)
  1. DICLOFENAC SODIUM. [Suspect]
     Active Substance: DICLOFENAC SODIUM
     Indication: PRODUCT USED FOR UNKNOWN INDICATION
     Dosage: 1 DF (50 MG), BID
     Route: 048
     Dates: start: 2016
  2. NAPROXEN. [Concomitant]
     Active Substance: NAPROXEN
     Indication: PRODUCT USED FOR UNKNOWN INDICATION
     Dosage: 1 DF (500 MG), BID
     Route: 048
     Dates: start: 2014, end: 2016
  3. ORENCIA [Concomitant]
     Active Substance: ABATACEPT
     Indication: PRODUCT USED FOR UNKNOWN INDICATION
     Dosage: 1 DF (125MG), QW
     Route: 058
     Dates: start: 201608, end: 20171124
  4. COSENTYX [Suspect]
     Active Substance: SECUKINUMAB
     Dosage: UNK
     Route: 058
     Dates: start: 20171228
  5. COSENTYX [Suspect]
     Active Substance: SECUKINUMAB
     Indication: ANKYLOSING SPONDYLITIS
     Dosage: 150 MG, WE
     Route: 058
     Dates: start: 20171214
  6. COSENTYX [Suspect]
     Active Substance: SECUKINUMAB
     Dosage: 150 MG, QMO
     Route: 058
  7. COSENTYX [Suspect]
     Active Substance: SECUKINUMAB
     Dosage: UNK
     Route: 058
     Dates: start: 20171221
  8. REMICADE [Concomitant]
     Active Substance: INFLIXIMAB
     Indication: PRODUCT USED FOR UNKNOWN INDICATION
     Dosage: UNK
     Route: 042
     Dates: start: 201506, end: 201606

REACTIONS (8)
  - Renal pain [Unknown]
  - Drug ineffective [Unknown]
  - Chest discomfort [Unknown]
  - Insomnia [Unknown]
  - Malaise [Unknown]
  - Chest pain [Not Recovered/Not Resolved]
  - Renal impairment [Unknown]
  - Pain [Unknown]

NARRATIVE: CASE EVENT DATE: 201712
